FAERS Safety Report 4477372-5 (Version None)
Quarter: 2004Q4

REPORT INFORMATION
  Report Type: 
  Country: None (occurrence: None)
  Receive Date: 20041013
  Receipt Date: 20041004
  Transmission Date: 20050328
  Serious: Yes (Hospitalization)
  Sender: FDA-Public Use
  Company Number: 2004CG01969

PATIENT
  Age: 60 Year
  Sex: Female

DRUGS (12)
  1. NEXIUM [Suspect]
     Dosage: 1 DF QD PO
     Route: 048
     Dates: end: 20040907
  2. KENZEN [Suspect]
     Dosage: 1 DF QD PO
     Route: 048
     Dates: end: 20040907
  3. PRACTAZIN [Suspect]
     Dosage: 1 DF QD PO
     Route: 048
     Dates: end: 20040907
  4. DIFFU  K [Suspect]
     Dates: end: 20040907
  5. ESBERIVEN [Suspect]
     Dates: end: 20040907
  6. SMECTA ^IPSEN^ [Suspect]
     Dates: end: 20040907
  7. GELOX [Suspect]
     Dates: end: 20040907
  8. DOLIPRANE [Suspect]
     Dosage: 1 DF QD PO
     Route: 048
     Dates: start: 20040715, end: 20040715
  9. FLECTOR [Suspect]
     Dosage: 1 DF QD TP
     Route: 061
     Dates: start: 20040715, end: 20040715
  10. LYSOPAINE [Suspect]
     Dosage: 1 DF QD PO
     Route: 048
     Dates: start: 20040717, end: 20040717
  11. SILOMAT [Suspect]
     Dates: start: 20040717, end: 20040717
  12. LEXOMIL [Suspect]
     Dates: start: 20040701, end: 20040701

REACTIONS (3)
  - NECROSIS [None]
  - SELF-MEDICATION [None]
  - VASCULAR PURPURA [None]
